FAERS Safety Report 20921062 (Version 1)
Quarter: 2022Q2

REPORT INFORMATION
  Report Type: Spontaneous
  Country: CN (occurrence: CN)
  Receive Date: 20220606
  Receipt Date: 20220606
  Transmission Date: 20220721
  Serious: Yes (Death, Disabling, Other)
  Sender: FDA-Public Use
  Company Number: None

PATIENT
  Age: 56 Year
  Sex: Female
  Weight: 58 kg

DRUGS (12)
  1. CYCLOPHOSPHAMIDE [Suspect]
     Active Substance: CYCLOPHOSPHAMIDE
     Indication: Invasive breast carcinoma
     Dosage: INJECTION, 1-3 NEOADJUVANT CHEMOTHERAPY- TAC REGIMEN, CYCLOPHOSPHAMIDE + 0.9% NS
     Route: 041
  2. CYCLOPHOSPHAMIDE [Suspect]
     Active Substance: CYCLOPHOSPHAMIDE
     Dosage: INJECTION, 4TH NEOADJUVANT CHEMOTHERAPY- TAC REGIMEN, CYCLOPHOSPHAMIDE (0.8 G) + 0.9% NS (500 ML)
     Route: 041
     Dates: start: 20220318, end: 20220318
  3. DOCETAXEL [Suspect]
     Active Substance: DOCETAXEL
     Indication: Invasive breast carcinoma
     Dosage: 1-3 NEOADJUVANT CHEMOTHERAPY- TAC REGIMEN, DOCETAXEL + 0.9% NS
     Route: 041
  4. DOCETAXEL [Suspect]
     Active Substance: DOCETAXEL
     Dosage: 4TH NEOADJUVANT CHEMOTHERAPY- TAC REGIMEN, DOCETAXEL (120 MG) + 0.9% NS (250 ML)
     Route: 041
     Dates: start: 20220318, end: 20220318
  5. DOXORUBICIN HYDROCHLORIDE [Suspect]
     Active Substance: DOXORUBICIN HYDROCHLORIDE
     Indication: Invasive breast carcinoma
     Dosage: 1-3 NEOADJUVANT CHEMOTHERAPY- TAC REGIMEN, DOXORUBICIN + 5% GS
     Route: 041
  6. DOXORUBICIN HYDROCHLORIDE [Suspect]
     Active Substance: DOXORUBICIN HYDROCHLORIDE
     Dosage: 4TH NEOADJUVANT CHEMOTHERAPY- TAC REGIMEN, DOXORUBICIN (80 MG) + 5% GS (250 ML)
     Route: 041
     Dates: start: 20220318, end: 20220318
  7. SODIUM CHLORIDE [Suspect]
     Active Substance: SODIUM CHLORIDE
     Indication: Medication dilution
     Dosage: 1-3 NEOADJUVANT CHEMOTHERAPY- TAC REGIMEN, CYCLOPHOSPHAMIDE + 0.9% NS
     Route: 041
  8. SODIUM CHLORIDE [Suspect]
     Active Substance: SODIUM CHLORIDE
     Dosage: 4TH NEOADJUVANT CHEMOTHERAPY- TAC REGIMEN, CYCLOPHOSPHAMIDE (0.8 G) + 0.9% NS (500 ML)
     Route: 041
     Dates: start: 20220318, end: 20220318
  9. SODIUM CHLORIDE [Suspect]
     Active Substance: SODIUM CHLORIDE
     Dosage: 1-3 NEOADJUVANT CHEMOTHERAPY- TAC REGIMEN, DOCETAXEL + 0.9% NS
     Route: 041
  10. SODIUM CHLORIDE [Suspect]
     Active Substance: SODIUM CHLORIDE
     Dosage: 4TH NEOADJUVANT CHEMOTHERAPY- TAC REGIMEN, DOCETAXEL (120 MG) + 0.9% NS (250 ML)
     Route: 041
     Dates: start: 20220318, end: 20220318
  11. DEXTROSE [Suspect]
     Active Substance: DEXTROSE
     Indication: Medication dilution
     Dosage: 1-3 NEOADJUVANT CHEMOTHERAPY- TAC REGIMEN, DOXORUBICIN + 5% GS
     Route: 041
  12. DEXTROSE [Suspect]
     Active Substance: DEXTROSE
     Dosage: 4TH NEOADJUVANT CHEMOTHERAPY- TAC REGIMEN, DOXORUBICIN (80 MG) + 5% GS (250 ML)
     Route: 041
     Dates: start: 20220318, end: 20220318

REACTIONS (4)
  - Oedema peripheral [Fatal]
  - Nausea [Recovered/Resolved with Sequelae]
  - Vomiting [Recovered/Resolved with Sequelae]
  - Discomfort [Recovered/Resolved]

NARRATIVE: CASE EVENT DATE: 20220320
